FAERS Safety Report 15702752 (Version 1)
Quarter: 2018Q4

REPORT INFORMATION
  Report Type: Spontaneous
  Country: US (occurrence: US)
  Receive Date: 20181210
  Receipt Date: 20181210
  Transmission Date: 20190205
  Serious: Yes (Hospitalization, Other)
  Sender: FDA-Public Use
  Company Number: US-AUROBINDO-AUR-APL-2018-058312

PATIENT
  Age: 86 Year
  Sex: Female

DRUGS (4)
  1. PREDNISONE. [Suspect]
     Active Substance: PREDNISONE
     Dosage: 50 MILLIGRAM, DAILY
     Route: 065
  2. PREDNISONE. [Suspect]
     Active Substance: PREDNISONE
     Dosage: 20MG
     Route: 065
  3. CIPROFLOXACIN. [Concomitant]
     Active Substance: CIPROFLOXACIN
     Indication: PRODUCT USED FOR UNKNOWN INDICATION
     Dosage: UNK
     Route: 065
  4. PREDNISONE. [Suspect]
     Active Substance: PREDNISONE
     Indication: TEMPORAL ARTERITIS
     Dosage: 60 MILLIGRAM, DAILY
     Route: 065

REACTIONS (14)
  - Weight decreased [Unknown]
  - Decreased appetite [Unknown]
  - Nodule [Recovering/Resolving]
  - Cellulitis [Recovering/Resolving]
  - Lymphadenopathy [Recovering/Resolving]
  - Dementia Alzheimer^s type [Not Recovered/Not Resolved]
  - Skin lesion [Recovering/Resolving]
  - Erythema [Recovering/Resolving]
  - Exercise tolerance decreased [Recovering/Resolving]
  - Mycobacterium chelonae infection [Unknown]
  - Confusional state [Unknown]
  - Fatigue [Recovering/Resolving]
  - Impaired work ability [Unknown]
  - Asthenia [Unknown]
